FAERS Safety Report 8004873-5 (Version None)
Quarter: 2011Q4

REPORT INFORMATION
  Report Type: 
  Country: None (occurrence: None)
  Receive Date: 20111223
  Receipt Date: 20111223
  Transmission Date: 20120403
  Serious: No
  Sender: FDA-Public Use
  Company Number: None

PATIENT
  Sex: Female
  Weight: 59.874 kg

DRUGS (1)
  1. AMBIEN [Suspect]
     Dosage: 5 MG
     Route: 048

REACTIONS (1)
  - DRUG WITHDRAWAL SYNDROME [None]
